FAERS Safety Report 6826212-5 (Version None)
Quarter: 2010Q3

REPORT INFORMATION
  Report Type: 
  Country: None (occurrence: None)
  Receive Date: 20100708
  Receipt Date: 20100708
  Transmission Date: 20110219
  Serious: No
  Sender: FDA-Public Use
  Company Number: None

PATIENT
  Age: 75 Year
  Sex: Male
  Weight: 80.74 kg

DRUGS (1)
  1. ACETYLCYSTEINE [Suspect]
     Indication: CHRONIC OBSTRUCTIVE PULMONARY DISEASE
     Dosage: 200 MG PRN INHALE
     Route: 055
     Dates: start: 20100528, end: 20100530

REACTIONS (4)
  - BRONCHOSPASM [None]
  - COUGH [None]
  - RESPIRATORY DEPRESSION [None]
  - WHEEZING [None]
